FAERS Safety Report 20471428 (Version 1)
Quarter: 2022Q1

REPORT INFORMATION
  Report Type: Spontaneous
  Country: US (occurrence: US)
  Receive Date: 20220214
  Receipt Date: 20220214
  Transmission Date: 20220423
  Serious: No
  Sender: FDA-Public Use
  Company Number: US-SANOFI-00962452

PATIENT
  Age: 43 Year
  Sex: Female

DRUGS (1)
  1. SOLIQUA 100/33 [Suspect]
     Active Substance: INSULIN GLARGINE\LIXISENATIDE
     Indication: Type 1 diabetes mellitus
     Dosage: DRUG STRUCTURE DOSAGE : 30 UNITS DRUG INTERVAL DOSAGE : TWICE DAILY DRUG TREATMENT DURATION: 8 MONTH

REACTIONS (2)
  - Inappropriate schedule of product administration [Unknown]
  - Product use in unapproved indication [Unknown]
